FAERS Safety Report 18009014 (Version 1)
Quarter: 2020Q3

REPORT INFORMATION
  Report Type: Spontaneous
  Country: US (occurrence: US)
  Receive Date: 20200710
  Receipt Date: 20200710
  Transmission Date: 20201103
  Serious: No
  Sender: FDA-Public Use
  Company Number: US-SAOL THERAPEUTICS-2020SAO00149

PATIENT
  Age: 34 Year
  Sex: Male

DRUGS (2)
  1. LIORESAL [Suspect]
     Active Substance: BACLOFEN
     Dosage: 625.9 ?G, \DAY ^OLD PUMP^
     Route: 037
  2. LIORESAL [Suspect]
     Active Substance: BACLOFEN
     Dosage: 626 ?G, \DAY ^NEW PUMP^
     Route: 037

REACTIONS (2)
  - Drug withdrawal syndrome [Unknown]
  - Device issue [Unknown]

NARRATIVE: CASE EVENT DATE: 202005
